FAERS Safety Report 4715672-1 (Version None)
Quarter: 2005Q3

REPORT INFORMATION
  Report Type: 
  Country: None (occurrence: None)
  Receive Date: 20050715
  Receipt Date: 20050715
  Transmission Date: 20060218
  Serious: Yes (Death, Hospitalization)
  Sender: FDA-Public Use
  Company Number: None

PATIENT
  Age: 81 Year
  Sex: Male
  Weight: 75.7507 kg

DRUGS (16)
  1. SIMVASTATIN [Suspect]
     Indication: CORONARY ARTERY DISEASE
     Dosage: 80 MG DAILY ORAL
     Route: 048
     Dates: start: 20020311, end: 20050520
  2. SIMVASTATIN [Suspect]
     Indication: CORONARY ARTERY SURGERY
     Dosage: 80 MG DAILY ORAL
     Route: 048
     Dates: start: 20020311, end: 20050520
  3. SIMVASTATIN [Suspect]
     Indication: DIABETES MELLITUS
     Dosage: 80 MG DAILY ORAL
     Route: 048
     Dates: start: 20020311, end: 20050520
  4. SIMVASTATIN [Suspect]
     Indication: HYPERLIPIDAEMIA
     Dosage: 80 MG DAILY ORAL
     Route: 048
     Dates: start: 20020311, end: 20050520
  5. ISOSORBIDE MONONITRATE [Concomitant]
  6. FUROSEMIDE [Concomitant]
  7. LOSARTAN [Concomitant]
  8. REGULAR INSULIN [Concomitant]
  9. INSULIN [Concomitant]
  10. CLOPIDOGREL BISULFATE [Concomitant]
  11. ASPIRIN [Concomitant]
  12. AMLODIPINE [Concomitant]
  13. SIMVASTATIN [Concomitant]
  14. METOPROLOL [Concomitant]
  15. VITAMIN E [Concomitant]
  16. ASCORBIC ACID [Concomitant]

REACTIONS (24)
  - ABDOMINAL DISTENSION [None]
  - ABDOMINAL PAIN [None]
  - ACIDOSIS [None]
  - ASTHENIA [None]
  - BLOOD ALKALINE PHOSPHATASE INCREASED [None]
  - BLOOD BILIRUBIN INCREASED [None]
  - BLOOD CREATINE PHOSPHOKINASE INCREASED [None]
  - BLOOD GASES ABNORMAL [None]
  - BLOOD PRESSURE SYSTOLIC DECREASED [None]
  - CARDIAC ARREST [None]
  - CHROMATURIA [None]
  - DIARRHOEA [None]
  - DYSPNOEA [None]
  - ELECTROCARDIOGRAM QRS COMPLEX PROLONGED [None]
  - HAEMODIALYSIS [None]
  - IMMOBILE [None]
  - LACTIC ACIDOSIS [None]
  - LOSS OF CONSCIOUSNESS [None]
  - MYALGIA [None]
  - PULSE ABSENT [None]
  - RENAL FAILURE ACUTE [None]
  - SEPSIS [None]
  - TACHYPNOEA [None]
  - WHITE BLOOD CELL COUNT INCREASED [None]
